FAERS Safety Report 21425491 (Version 3)
Quarter: 2023Q1

REPORT INFORMATION
  Report Type: Report from Study
  Country: US (occurrence: US)
  Receive Date: 20221008
  Receipt Date: 20230328
  Transmission Date: 20230418
  Serious: No
  Sender: FDA-Public Use
  Company Number: US-ABBVIE-4138073

PATIENT
  Age: 63 Year
  Sex: Female

DRUGS (2)
  1. SKYRIZI [Suspect]
     Active Substance: RISANKIZUMAB-RZAA
     Indication: Psoriasis
     Dosage: WEEK 0
     Route: 058
     Dates: start: 202208, end: 202208
  2. SKYRIZI [Suspect]
     Active Substance: RISANKIZUMAB-RZAA
     Dosage: WEEK 4
     Route: 058
     Dates: start: 202209, end: 202209

REACTIONS (7)
  - Dry skin [Unknown]
  - Eczema [Unknown]
  - Psoriasis [Unknown]
  - Drug ineffective [Unknown]
  - Papule [Recovering/Resolving]
  - Erythema [Unknown]
  - Erythema [Unknown]

NARRATIVE: CASE EVENT DATE: 20220801
